FAERS Safety Report 23128460 (Version 1)
Quarter: 2023Q4

REPORT INFORMATION
  Report Type: Spontaneous
  Country: BR (occurrence: BR)
  Receive Date: 20231031
  Receipt Date: 20231031
  Transmission Date: 20240109
  Serious: Yes (Other)
  Sender: FDA-Public Use
  Company Number: BR-AMGEN-BRASP2023190996

PATIENT
  Age: 64 Year
  Sex: Male

DRUGS (6)
  1. FILGRASTIM [Suspect]
     Active Substance: FILGRASTIM
     Indication: Myelodysplastic syndrome
     Dosage: UNK
     Route: 065
  2. EPOETIN ALFA [Concomitant]
     Active Substance: ERYTHROPOIETIN
     Indication: Myelodysplastic syndrome
  3. AZACITIDINE [Concomitant]
     Active Substance: AZACITIDINE
  4. VITAMIN B1 [Concomitant]
     Active Substance: THIAMINE HYDROCHLORIDE
  5. VITAMIN C [Concomitant]
     Active Substance: ASCORBIC ACID
  6. VITAMIN D [Concomitant]
     Active Substance: VITAMIN D NOS

REACTIONS (5)
  - Carcinoma in situ [Unknown]
  - Pyoderma gangrenosum [Recovered/Resolved]
  - Bipolar disorder [Unknown]
  - COVID-19 [Unknown]
  - Impaired healing [Unknown]

NARRATIVE: CASE EVENT DATE: 20221101
